FAERS Safety Report 10178325 (Version 1)
Quarter: 2014Q2

REPORT INFORMATION
  Report Type: Spontaneous
  Country: US (occurrence: None)
  Receive Date: 20140516
  Receipt Date: 20140516
  Transmission Date: 20141212
  Serious: Yes (Life-Threatening, Hospitalization, Disabling)
  Sender: FDA-Public Use
  Company Number: None

PATIENT
  Age: 15 Year
  Sex: Female
  Weight: 95.26 kg

DRUGS (10)
  1. IMPLANON [Suspect]
     Indication: CONTRACEPTION
     Dosage: IMPLANTED FOR 3 YEARS
     Dates: start: 20100408
  2. IMPLANON [Concomitant]
  3. ADYVIERA [Concomitant]
  4. BACTRIM [Concomitant]
  5. OTRICYCOLEN [Concomitant]
  6. BENADRIL [Concomitant]
  7. AYO KIDNEY MEDICINE [Concomitant]
  8. IRON SUPPLEMENTS [Concomitant]
  9. CALCIUM VITAMINS [Concomitant]
  10. BIRTH CONTROL [Concomitant]

REACTIONS (5)
  - Ovarian cyst [None]
  - Hypertension [None]
  - Anaemia [None]
  - Haemorrhage [None]
  - Malaise [None]
